FAERS Safety Report 9728044 (Version 1)
Quarter: 2013Q4

REPORT INFORMATION
  Report Type: Spontaneous
  Country: US (occurrence: None)
  Receive Date: 20131203
  Receipt Date: 20131203
  Transmission Date: 20140711
  Serious: No
  Sender: FDA-Public Use
  Company Number: None

PATIENT
  Age: 47 Year
  Sex: Female
  Weight: 71.67 kg

DRUGS (1)
  1. SULFAMETHOXAZOLE/TRIMETHOPRIM [Suspect]
     Indication: EAR INFECTION
     Dosage: 1 PILL, TWICE DAILY, TAKEN BY MOUTH
     Dates: start: 20131118, end: 20131127

REACTIONS (9)
  - Pyrexia [None]
  - Headache [None]
  - Chills [None]
  - Hyperhidrosis [None]
  - Pain [None]
  - Dizziness [None]
  - Pruritus [None]
  - Rash [None]
  - Eosinophil count increased [None]
